FAERS Safety Report 8576763 (Version 3)
Quarter: 2012Q4

REPORT INFORMATION
  Report Type: 
  Country: US (occurrence: US)
  Receive Date: 20120523
  Receipt Date: 20121001
  Transmission Date: 20130627
  Serious: Yes (Other)
  Sender: FDA-Public Use
  Company Number: US-RB-040489-12

PATIENT
  Age: 38 None
  Sex: Female

DRUGS (5)
  1. SUBOXONE FILM [Suspect]
     Dosage: Tapered doses
     Route: 060
     Dates: start: 20120501, end: 20120503
  2. SUBOXONE FILM [Suspect]
     Indication: DRUG DEPENDENCE
     Dosage: Suboxone film
     Route: 060
     Dates: start: 20120526
  3. XANAX [Suspect]
     Indication: ANXIETY
     Route: 048
     Dates: start: 2012, end: 20120430
  4. XANAX [Suspect]
     Dosage: Dosing details unknown
     Route: 048
     Dates: start: 20120504
  5. BUSPAR [Suspect]
     Indication: ANXIETY
     Dosage: Dosing details unknown
     Route: 048
     Dates: start: 20120501, end: 20120504

REACTIONS (15)
  - Gastrointestinal ulcer haemorrhage [Recovered/Resolved]
  - Off label use [Recovered/Resolved]
  - Chills [Recovered/Resolved]
  - Tremor [Recovered/Resolved]
  - Hiatus hernia [Not Recovered/Not Resolved]
  - Anxiety [Recovered/Resolved]
  - Panic attack [Recovered/Resolved]
  - Headache [Recovered/Resolved]
  - Drug withdrawal syndrome [Recovered/Resolved]
  - Nausea [Recovered/Resolved]
  - Vomiting [Recovered/Resolved]
  - Hot flush [Recovered/Resolved]
  - Cold sweat [Recovered/Resolved]
  - Abdominal pain upper [Recovered/Resolved]
  - Drug ineffective [Recovered/Resolved]
